FAERS Safety Report 8136367-0 (Version None)
Quarter: 2012Q1

REPORT INFORMATION
  Report Type: 
  Country: None (occurrence: None)
  Receive Date: 20120214
  Receipt Date: 20120213
  Transmission Date: 20120608
  Serious: No
  Sender: FDA-Public Use
  Company Number: US-PFIZER INC-2012039074

PATIENT
  Sex: Male
  Weight: 100 kg

DRUGS (10)
  1. CHANTIX [Suspect]
     Indication: SMOKING CESSATION THERAPY
     Dosage: 0.5 MG, DAILY
     Route: 048
     Dates: start: 20120202
  2. LISINOPRIL [Concomitant]
     Dosage: 40 MG, DAILY
     Route: 048
  3. VALACICLOVIR HYDROCHLORIDE [Concomitant]
     Indication: HERPES VIRUS INFECTION
     Dosage: 500 MG, AS NEEDED
  4. WARFARIN [Concomitant]
     Indication: BLOOD DISORDER
     Dosage: 4 MG, DAILY
     Route: 048
  5. VALIUM [Concomitant]
     Indication: NERVOUSNESS
     Dosage: UNK
  6. CRESTOR [Concomitant]
     Indication: BLOOD CHOLESTEROL INCREASED
     Dosage: 20 MG,  DAILY
     Route: 048
  7. DIAZEPAM [Concomitant]
     Dosage: 5 MG, 3X/DAY
  8. CHANTIX [Suspect]
     Dosage: UNK
     Route: 048
     Dates: start: 20120201
  9. DILTIAZEM HYDROCHLORIDE [Concomitant]
     Indication: CARDIAC DISORDER
     Dosage: 240 MG, DAILY
     Route: 048
  10. WARFARIN [Concomitant]
     Dosage: 4 MG, AS NEEDED
     Route: 048

REACTIONS (2)
  - DRUG INEFFECTIVE [None]
  - MUSCULOSKELETAL STIFFNESS [None]
